FAERS Safety Report 14644066 (Version 2)
Quarter: 2018Q2

REPORT INFORMATION
  Report Type: Spontaneous
  Country: GB (occurrence: FR)
  Receive Date: 20180315
  Receipt Date: 20180402
  Transmission Date: 20180711
  Serious: Yes (Death)
  Sender: FDA-Public Use
  Company Number: FR-FRESENIUS KABI-FK201803138

PATIENT
  Age: 54 Year
  Sex: Male
  Weight: 54 kg

DRUGS (23)
  1. VANCOMYCIN (MANUFACTURER UNKNOWN) [Suspect]
     Active Substance: VANCOMYCIN
     Indication: PRODUCT USED FOR UNKNOWN INDICATION
     Route: 042
     Dates: start: 20180130, end: 20180202
  2. AXEPIM 2G, POWDER FOR PARENTERAL USAGE [Suspect]
     Active Substance: CEFEPIME HYDROCHLORIDE
     Indication: INFECTION
     Route: 042
     Dates: start: 20180129, end: 20180201
  3. INEXIUM [Concomitant]
     Active Substance: ESOMEPRAZOLE
     Indication: PRODUCT USED FOR UNKNOWN INDICATION
     Route: 042
  4. CANCIDAS [Suspect]
     Active Substance: CASPOFUNGIN ACETATE
     Indication: INFECTION
     Route: 042
     Dates: start: 20180202, end: 20180206
  5. AMIKACINE [Suspect]
     Active Substance: AMIKACIN
     Indication: INFECTION
     Route: 042
     Dates: start: 20180211, end: 20180217
  6. LASILIX [Concomitant]
     Active Substance: FUROSEMIDE
     Indication: PRODUCT USED FOR UNKNOWN INDICATION
     Route: 042
     Dates: start: 20180130
  7. COLIMYCINE [Suspect]
     Active Substance: COLISTIMETHATE SODIUM
     Indication: INFECTION
     Route: 065
     Dates: start: 20180211, end: 20180226
  8. FLAGYL [Suspect]
     Active Substance: METRONIDAZOLE\METRONIDAZOLE HYDROCHLORIDE
     Indication: INFECTION
     Route: 042
     Dates: start: 20180120, end: 20180126
  9. SUFENTANIL [Concomitant]
     Active Substance: SUFENTANIL
     Indication: PRODUCT USED FOR UNKNOWN INDICATION
     Route: 042
     Dates: start: 20180120
  10. PERFALGAN [Concomitant]
     Active Substance: ACETAMINOPHEN
     Indication: PRODUCT USED FOR UNKNOWN INDICATION
     Route: 042
     Dates: start: 20180123
  11. CATAPRESSAN [Concomitant]
     Active Substance: CLONIDINE
     Indication: PRODUCT USED FOR UNKNOWN INDICATION
     Route: 042
     Dates: start: 20180206, end: 20180212
  12. INSULINE [Concomitant]
     Active Substance: INSULIN NOS
     Indication: PRODUCT USED FOR UNKNOWN INDICATION
     Route: 065
     Dates: start: 20180120
  13. EUPRESSYL [Concomitant]
     Active Substance: URAPIDIL
     Indication: PRODUCT USED FOR UNKNOWN INDICATION
     Route: 042
     Dates: start: 20180202
  14. ATARAX [Concomitant]
     Active Substance: HYDROXYZINE HYDROCHLORIDE
     Indication: PRODUCT USED FOR UNKNOWN INDICATION
     Route: 048
     Dates: start: 20180212, end: 20180214
  15. LOVENOX [Concomitant]
     Active Substance: ENOXAPARIN SODIUM
     Indication: PRODUCT USED FOR UNKNOWN INDICATION
     Route: 058
  16. CARDENSIEL [Concomitant]
     Active Substance: BISOPROLOL FUMARATE
     Indication: PRODUCT USED FOR UNKNOWN INDICATION
     Route: 048
     Dates: start: 20180206, end: 20180226
  17. ATROVENT [Concomitant]
     Active Substance: IPRATROPIUM BROMIDE
     Indication: PRODUCT USED FOR UNKNOWN INDICATION
     Route: 055
     Dates: start: 20180128
  18. FORTUM 2G, POWDER FOR INJECTABLE SOLUTION (IV) [Suspect]
     Active Substance: CEFTAZIDIME
     Indication: INFECTION
     Route: 042
     Dates: start: 20180131, end: 20180202
  19. TIENAM [Suspect]
     Active Substance: CILASTATIN SODIUM\IMIPENEM
     Indication: INFECTION
     Route: 042
     Dates: start: 20180201, end: 20180211
  20. TRIFLUCAN 2 MG/ML, SOLUTION FOR INFUSION [Suspect]
     Active Substance: FLUCONAZOLE
     Indication: INFECTION
     Route: 042
     Dates: start: 20180207, end: 20180213
  21. CIFLOX 200 MG/100 ML, INJECTABLE SOLUTION FOR INFUSION (IV) [Suspect]
     Active Substance: CIPROFLOXACIN LACTATE
     Indication: INFECTION
     Route: 042
     Dates: start: 20180211, end: 20180226
  22. RAMIPRIL. [Concomitant]
     Active Substance: RAMIPRIL
     Indication: PRODUCT USED FOR UNKNOWN INDICATION
     Route: 048
     Dates: start: 20180206, end: 20180226
  23. ROCEPHINE [Concomitant]
     Active Substance: CEFTRIAXONE SODIUM
     Indication: PRODUCT USED FOR UNKNOWN INDICATION
     Route: 042
     Dates: start: 20180120, end: 20180129

REACTIONS (1)
  - Toxic epidermal necrolysis [Fatal]

NARRATIVE: CASE EVENT DATE: 20180212
